FAERS Safety Report 5515934-4 (Version None)
Quarter: 2007Q4

REPORT INFORMATION
  Report Type: 
  Country: None (occurrence: None)
  Receive Date: 20071109
  Receipt Date: 20070920
  Transmission Date: 20080405
  Serious: Yes (Other)
  Sender: FDA-Public Use
  Company Number: 2007S1009529

PATIENT
  Age: 76 Year
  Sex: Female

DRUGS (3)
  1. AMLODIPINE [Suspect]
     Indication: BLOOD PRESSURE INCREASED
     Dosage: 5 MG, ORAL
     Route: 048
     Dates: start: 20070817, end: 20070906
  2. RAMIPRIL [Suspect]
     Indication: BLOOD PRESSURE INCREASED
     Dosage: 10 MG; ORAL
     Route: 048
     Dates: start: 20060626
  3. RAMIPRIL [Concomitant]

REACTIONS (2)
  - DRUG INTERACTION [None]
  - SOMNOLENCE [None]
